FAERS Safety Report 4948087-1 (Version None)
Quarter: 2006Q1

REPORT INFORMATION
  Report Type: 
  Country: None (occurrence: None)
  Receive Date: 20060320
  Receipt Date: 20060306
  Transmission Date: 20060701
  Serious: Yes (Death, Hospitalization)
  Sender: FDA-Public Use
  Company Number: US-MERCK-0603USA02835

PATIENT
  Age: 76 Year
  Sex: Female

DRUGS (1)
  1. VIOXX [Suspect]
     Route: 048

REACTIONS (6)
  - ANXIETY [None]
  - CARDIAC ARREST [None]
  - CAROTID ARTERY STENOSIS [None]
  - DYSTONIA [None]
  - GLUCOSE TOLERANCE IMPAIRED [None]
  - HYPERTENSION [None]
